FAERS Safety Report 9206093 (Version 1)
Quarter: 2013Q1

REPORT INFORMATION
  Report Type: Spontaneous
  Country: US (occurrence: None)
  Receive Date: 20120709
  Receipt Date: 20120709
  Transmission Date: 20140127
  Serious: Yes (Other)
  Sender: FDA-Public Use
  Company Number: PHHY2010US51164

PATIENT
  Age: 61 Year
  Sex: Female

DRUGS (1)
  1. GLEEVEC (IMATINIB) [Suspect]
     Indication: CHRONIC MYELOID LEUKAEMIA
     Route: 048
     Dates: start: 20111116

REACTIONS (9)
  - Cataract [None]
  - Muscle spasms [None]
  - Eye pruritus [None]
  - Periorbital oedema [None]
  - Myalgia [None]
  - Arthralgia [None]
  - Nausea [None]
  - Ocular hyperaemia [None]
  - Nasal congestion [None]
